FAERS Safety Report 17914104 (Version 1)
Quarter: 2020Q2

REPORT INFORMATION
  Report Type: Spontaneous
  Country: GB (occurrence: GB)
  Receive Date: 20200618
  Receipt Date: 20200618
  Transmission Date: 20200714
  Serious: Yes (Other)
  Sender: FDA-Public Use
  Company Number: GB-BAYER-2020-110757

PATIENT
  Age: 40 Year
  Sex: Female
  Weight: 89 kg

DRUGS (9)
  1. VALPROIC ACID. [Concomitant]
     Active Substance: VALPROIC ACID
  2. YASMIN [Suspect]
     Active Substance: DROSPIRENONE\ETHINYL ESTRADIOL
     Indication: PREMENSTRUAL SYNDROME
     Dosage: 1 DF, QD
     Route: 048
     Dates: start: 20200415, end: 20200427
  3. HUMALOG MIX [Concomitant]
     Active Substance: INSULIN LISPRO
  4. ZAPONEX [Suspect]
     Active Substance: CLOZAPINE
     Indication: PERSONALITY DISORDER
     Dosage: 200 MG
     Route: 048
  5. ZOPICLONE [Concomitant]
     Active Substance: ZOPICLONE
  6. ARIPIPRAZOLE. [Concomitant]
     Active Substance: ARIPIPRAZOLE
  7. LORAZEPAM. [Concomitant]
     Active Substance: LORAZEPAM
  8. DOCUSATE SODIUM. [Concomitant]
     Active Substance: DOCUSATE SODIUM
  9. SENNOSIDE A+B [Concomitant]
     Active Substance: SENNOSIDES A AND B

REACTIONS (3)
  - Drug interaction [Recovered/Resolved]
  - Neutropenia [Recovered/Resolved]
  - Thrombocytopenia [Recovered/Resolved]

NARRATIVE: CASE EVENT DATE: 20200415
